FAERS Safety Report 16546998 (Version 2)
Quarter: 2020Q1

REPORT INFORMATION
  Report Type: Spontaneous
  Country: ES (occurrence: ES)
  Receive Date: 20190709
  Receipt Date: 20200228
  Transmission Date: 20200409
  Serious: Yes (Other)
  Sender: FDA-Public Use
  Company Number: ES-MYLANLABS-2019M1062607

PATIENT
  Age: 68 Year
  Sex: Male
  Weight: 64 kg

DRUGS (27)
  1. PARACETAMOL [Concomitant]
     Active Substance: ACETAMINOPHEN
     Indication: ARTHRALGIA
     Dosage: DOSAGE FORM: UNSPECIFIED
     Route: 065
  2. CARBOPLATIN. [Concomitant]
     Active Substance: CARBOPLATIN
     Indication: LUNG CANCER METASTATIC
     Dosage: DOSAGE FORM: UNSPECIFIED, IN CYCLES OF 21 DAYS
     Route: 065
  3. FENTANYL. [Suspect]
     Active Substance: FENTANYL
     Indication: ANALGESIC THERAPY
     Dosage: 25 MICROGRAM
     Route: 062
  4. ACETAMINOPHEN. [Concomitant]
     Active Substance: ACETAMINOPHEN
     Indication: ARTHRALGIA
  5. NALOXEGOL [Concomitant]
     Active Substance: NALOXEGOL
     Indication: CONSTIPATION
     Dosage: DOSAGE FORM: UNSPECIFIED
     Route: 048
  6. FENTANYL. [Suspect]
     Active Substance: FENTANYL
     Indication: CHEST PAIN
  7. MORPHINE [Concomitant]
     Active Substance: MORPHINE
     Indication: CANCER PAIN
     Dosage: DOSAGE FORM: UNSPECIFIED
     Route: 065
  8. PARACETAMOL [Concomitant]
     Active Substance: ACETAMINOPHEN
     Indication: ARTHRALGIA
  9. FENTANYL. [Suspect]
     Active Substance: FENTANYL
     Indication: PAIN
  10. FENTANYL. [Suspect]
     Active Substance: FENTANYL
     Dosage: 100 MICROGRAM
  11. PARACETAMOL + TRAMADOL [Concomitant]
     Active Substance: ACETAMINOPHEN\TRAMADOL
     Indication: CHEST PAIN
  12. FENTANYL. [Suspect]
     Active Substance: FENTANYL
     Indication: CANCER PAIN
     Dosage: WITH INCREASED DOSAGE
  13. PARACETAMOL + TRAMADOL [Concomitant]
     Active Substance: ACETAMINOPHEN\TRAMADOL
     Indication: CANCER PAIN
  14. PARACETAMOL [Concomitant]
     Active Substance: ACETAMINOPHEN
     Indication: CHEST PAIN
  15. PREDNISONE. [Concomitant]
     Active Substance: PREDNISONE
     Indication: PRODUCT USED FOR UNKNOWN INDICATION
     Dosage: DOSAGE FORM: UNSPECIFIED
     Route: 065
  16. GEMCITABINE. [Concomitant]
     Active Substance: GEMCITABINE
     Indication: LUNG CANCER METASTATIC
     Dosage: DOSAGE FORM: UNSPECIFIED, IN CYCLES OF 21 DAYS
     Route: 065
  17. FENTANYL. [Suspect]
     Active Substance: FENTANYL
     Indication: CANCER PAIN
  18. HYDROCHLOROTHIAZIDE. [Concomitant]
     Active Substance: HYDROCHLOROTHIAZIDE
     Indication: HYPERTENSION
     Dosage: DOSAGE FORM: UNSPECIFIED
     Route: 065
  19. ACETAMINOPHEN. [Concomitant]
     Active Substance: ACETAMINOPHEN
     Indication: ARTHRALGIA
     Dosage: DOSAGE FORM: UNSPECIFIED
     Route: 065
  20. ACETAMINOPHEN. [Concomitant]
     Active Substance: ACETAMINOPHEN
     Indication: CHEST PAIN
  21. FENTANYL. [Suspect]
     Active Substance: FENTANYL
     Dosage: 100 MICROGRAM
  22. SIMVASTATIN. [Concomitant]
     Active Substance: SIMVASTATIN
     Indication: DYSLIPIDAEMIA
     Dosage: DOSAGE FORM: UNSPECIFIED
     Route: 065
  23. FENTANYL. [Suspect]
     Active Substance: FENTANYL
     Indication: OROPHARYNGEAL PAIN
     Dosage: 75 MICROGRAM
     Route: 062
  24. PARACETAMOL + TRAMADOL [Concomitant]
     Active Substance: ACETAMINOPHEN\TRAMADOL
     Indication: PAIN
     Dosage: UNK
     Route: 065
  25. OMEPRAZOLE. [Concomitant]
     Active Substance: OMEPRAZOLE
     Indication: PRODUCT USED FOR UNKNOWN INDICATION
     Dosage: DOSAGE FORM: UNSPECIFIED
     Route: 065
  26. METAMIZOLE [Concomitant]
     Active Substance: METAMIZOLE
     Indication: CONSTIPATION
     Dosage: DOSAGE FORM: UNSPECIFIED
     Route: 065
  27. METAMIZOLE [Concomitant]
     Active Substance: METAMIZOLE
     Indication: CANCER PAIN

REACTIONS (8)
  - Constipation [Recovered/Resolved]
  - Dyschezia [Unknown]
  - Proctalgia [Unknown]
  - Diarrhoea [Unknown]
  - Faeces hard [Unknown]
  - Aerophagia [Unknown]
  - Abdominal pain [Unknown]
  - Condition aggravated [Recovered/Resolved]
